FAERS Safety Report 18735619 (Version 8)
Quarter: 2022Q2

REPORT INFORMATION
  Report Type: Report from Study
  Country: US (occurrence: US)
  Receive Date: 20210113
  Receipt Date: 20220422
  Transmission Date: 20220721
  Serious: Yes (Life-Threatening)
  Sender: FDA-Public Use
  Company Number: US-ABBVIE-20P-163-3677412-00

PATIENT
  Age: 75 Year
  Sex: Female
  Weight: 64.2 kg

DRUGS (40)
  1. VENETOCLAX [Suspect]
     Active Substance: VENETOCLAX
     Indication: Follicular lymphoma
     Dosage: DATE OF DOSE BEFORE SAE04NOV2020.DATE OF RECENT DOSE PRIOR TO 4TH EPISODE OF SAE12FEB2021.
     Route: 048
     Dates: start: 20200928
  2. VENETOCLAX [Suspect]
     Active Substance: VENETOCLAX
     Dosage: C5D1, DOSE REDUCED TO DOSE LEVEL
     Route: 048
     Dates: start: 20210104
  3. OBINUTUZUMAB [Concomitant]
     Active Substance: OBINUTUZUMAB
     Indication: Follicular lymphoma
     Dosage: DATE OF DOSE PRIOR TO EVENT 26OCT2020. PRIOR TO 4TH EPISODE 08FEB2021.C1D1,2,8.
     Route: 042
     Dates: start: 20200831
  4. OBINUTUZUMAB [Concomitant]
     Active Substance: OBINUTUZUMAB
     Dosage: C5D1
     Route: 042
     Dates: start: 20210104
  5. BENDAMUSTINE [Concomitant]
     Active Substance: BENDAMUSTINE
     Indication: Follicular lymphoma
     Dosage: DATE OF DOSE PRIOR TO SAE27OCT2020. PRIOR TO 4TH EPISODE 09FEB2021. D1 + D2 OF EACH CYCLE.
     Route: 042
     Dates: start: 20200831
  6. BENDAMUSTINE [Concomitant]
     Active Substance: BENDAMUSTINE
     Dosage: C5D1
     Route: 042
     Dates: start: 20210105
  7. ATOVAQUONE [Concomitant]
     Active Substance: ATOVAQUONE
     Indication: Product used for unknown indication
     Dosage: (750MG/5ML SUSPENSION)
     Route: 048
     Dates: start: 20200831, end: 20200914
  8. ACYCLOVIR [Concomitant]
     Active Substance: ACYCLOVIR
     Indication: Product used for unknown indication
     Route: 048
  9. VITAMINS [Concomitant]
     Active Substance: VITAMINS
     Indication: Product used for unknown indication
     Route: 048
  10. FAMOTIDINE [Concomitant]
     Active Substance: FAMOTIDINE
     Indication: Product used for unknown indication
     Route: 048
  11. ALENDRONATE SODIUM [Concomitant]
     Active Substance: ALENDRONATE SODIUM
     Indication: Product used for unknown indication
     Route: 048
  12. ONDANSETRON [Concomitant]
     Active Substance: ONDANSETRON
     Indication: Product used for unknown indication
     Dosage: AS NEEDED
     Route: 048
  13. ALBUTEROL SULFATE [Concomitant]
     Active Substance: ALBUTEROL SULFATE
     Indication: Product used for unknown indication
     Dosage: 108; 2 PUFFS PRIOR TO PENTAMIDINE NEBULIZER
     Route: 055
  14. ALBUTEROL SULFATE [Concomitant]
     Active Substance: ALBUTEROL SULFATE
     Dosage: 2.5 MG/3ML; ADMINISTERED W/ PENTAMIDINE (2.5 MG)
     Route: 055
  15. PENTAMIDINE ISETHIONATE [Concomitant]
     Active Substance: PENTAMIDINE ISETHIONATE
     Indication: Product used for unknown indication
     Route: 055
  16. MORPHINE SULFATE [Concomitant]
     Active Substance: MORPHINE SULFATE
     Indication: Product used for unknown indication
     Route: 055
     Dates: start: 20200918
  17. MORPHINE SULFATE [Concomitant]
     Active Substance: MORPHINE SULFATE
     Route: 055
     Dates: start: 20200918
  18. MORPHINE SULFATE [Concomitant]
     Active Substance: MORPHINE SULFATE
     Route: 048
     Dates: start: 20201008, end: 20201023
  19. NALOXONE HCL [Concomitant]
     Active Substance: NALOXONE HYDROCHLORIDE
     Indication: Product used for unknown indication
     Dosage: 4 MG/0.1ML; ONE SPRAY
     Route: 045
  20. OXYCODONE HYDROCHLORIDE [Concomitant]
     Active Substance: OXYCODONE HYDROCHLORIDE
     Indication: Product used for unknown indication
     Dosage: AS NEEDED
     Route: 048
  21. MAGNESIUM [Concomitant]
     Active Substance: MAGNESIUM
     Indication: Product used for unknown indication
     Route: 048
  22. POTASSIUM CHLORIDE [Concomitant]
     Active Substance: POTASSIUM CHLORIDE
     Indication: Product used for unknown indication
     Route: 048
  23. ACETAMINOPHEN [Concomitant]
     Active Substance: ACETAMINOPHEN
     Indication: Product used for unknown indication
     Route: 048
  24. CLARITIN [Concomitant]
     Active Substance: LORATADINE
     Indication: Product used for unknown indication
     Route: 048
  25. LIDOCAINE [Concomitant]
     Active Substance: LIDOCAINE
     Indication: Product used for unknown indication
     Dosage: 1 PATCH
     Route: 061
     Dates: start: 20201223, end: 20201223
  26. CYCLOBENZAPRINE [Concomitant]
     Active Substance: CYCLOBENZAPRINE
     Indication: Product used for unknown indication
     Route: 048
  27. SYSTANE (HYPROMELLOSE 2910 (4000 MPA.S)) [Concomitant]
     Active Substance: HYPROMELLOSE 2910 (4000 MPA.S)
     Indication: Dry eye
     Dosage: BOTH EYES
     Route: 047
  28. FOSAMAX [Concomitant]
     Active Substance: ALENDRONATE SODIUM
     Indication: Osteoporosis
     Route: 048
  29. CHOLECALCIFEROL [Concomitant]
     Active Substance: CHOLECALCIFEROL
     Indication: Vitamin D deficiency
     Route: 048
  30. LEVOTHYROXINE [Concomitant]
     Active Substance: LEVOTHYROXINE
     Indication: Hypothyroidism
     Route: 048
  31. LEVOTHYROXINE [Concomitant]
     Active Substance: LEVOTHYROXINE
     Dosage: BID ON SUNDAYS
     Route: 048
  32. BACLOFEN [Concomitant]
     Active Substance: BACLOFEN
     Indication: Muscle spasms
     Route: 048
     Dates: start: 20201223, end: 20201226
  33. CALCIUM ASCORBATE [Concomitant]
     Active Substance: CALCIUM ASCORBATE
     Indication: Product used for unknown indication
     Route: 048
  34. ALLOPURINOL [Concomitant]
     Active Substance: ALLOPURINOL
     Indication: Prophylaxis
     Route: 048
     Dates: start: 20200831, end: 20201026
  35. PEGFILGRASTIM [Concomitant]
     Active Substance: PEGFILGRASTIM
     Indication: Product used for unknown indication
     Route: 058
  36. NAPROXEN SODIUM [Concomitant]
     Active Substance: NAPROXEN SODIUM
     Indication: Muscle spasms
     Dosage: QHS
     Route: 048
     Dates: start: 20210111, end: 20210114
  37. FILGRASTIM [Concomitant]
     Active Substance: FILGRASTIM
     Indication: Product used for unknown indication
  38. PROCHLORPERAZINE MALEATE [Concomitant]
     Active Substance: PROCHLORPERAZINE MALEATE
     Indication: Product used for unknown indication
  39. FOSAPREPITANT DIMEGLUMINE [Concomitant]
     Active Substance: FOSAPREPITANT DIMEGLUMINE
     Indication: Product used for unknown indication
  40. CALCIUM CITRATE [Concomitant]
     Active Substance: CALCIUM CITRATE
     Indication: Product used for unknown indication

REACTIONS (1)
  - Neutrophil count decreased [Recovered/Resolved]

NARRATIVE: CASE EVENT DATE: 20201123
